FAERS Safety Report 5489920-7 (Version None)
Quarter: 2007Q4

REPORT INFORMATION
  Report Type: 
  Country: None (occurrence: None)
  Receive Date: 20071015
  Receipt Date: 20070620
  Transmission Date: 20080405
  Serious: No
  Sender: FDA-Public Use
  Company Number: 2007SP002309

PATIENT
  Age: 43 Year
  Sex: Female
  Weight: 63.5036 kg

DRUGS (4)
  1. LUNESTA [Suspect]
     Indication: INSOMNIA
     Dosage: 1.5 MG;PRN;ORAL; 1 MG;PRN;ORAL
     Route: 048
     Dates: start: 20070301, end: 20070601
  2. LUNESTA [Suspect]
     Indication: INSOMNIA
     Dosage: 1.5 MG;PRN;ORAL; 1 MG;PRN;ORAL
     Route: 048
     Dates: start: 20070619
  3. PROZAC [Concomitant]
  4. AMBIEN [Concomitant]

REACTIONS (2)
  - DYSGEUSIA [None]
  - INSOMNIA [None]
